FAERS Safety Report 5531302-3 (Version None)
Quarter: 2007Q4

REPORT INFORMATION
  Report Type: 
  Country: None (occurrence: None)
  Receive Date: 20071128
  Receipt Date: 20071116
  Transmission Date: 20080405
  Serious: Yes (Hospitalization)
  Sender: FDA-Public Use
  Company Number: 2007SP023214

PATIENT
  Sex: Male

DRUGS (1)
  1. NASONEX [Suspect]
     Indication: ADENOIDAL DISORDER

REACTIONS (2)
  - DIZZINESS [None]
  - MUSCLE SPASMS [None]
